FAERS Safety Report 10371564 (Version 2)
Quarter: 2014Q4

REPORT INFORMATION
  Report Type: Spontaneous
  Country: JP (occurrence: JP)
  Receive Date: 20140808
  Receipt Date: 20141106
  Transmission Date: 20150528
  Serious: Yes (Death, Other)
  Sender: FDA-Public Use
  Company Number: PHHY2014JP097452

PATIENT
  Age: 97 Year
  Sex: Female

DRUGS (1)
  1. EXELON PATCH [Suspect]
     Active Substance: RIVASTIGMINE
     Indication: DEMENTIA ALZHEIMER^S TYPE
     Dosage: UNK
     Route: 062
     Dates: start: 20130226, end: 20130912

REACTIONS (5)
  - Pneumonia aspiration [Unknown]
  - Shock [Unknown]
  - Pyrexia [Unknown]
  - Haematochezia [Unknown]
  - Gastric ulcer perforation [Fatal]

NARRATIVE: CASE EVENT DATE: 20130914
